FAERS Safety Report 8538460-7 (Version None)
Quarter: 2012Q3

REPORT INFORMATION
  Report Type: 
  Country: None (occurrence: None)
  Receive Date: 20120726
  Receipt Date: 20120719
  Transmission Date: 20120928
  Serious: Yes (Hospitalization)
  Sender: FDA-Public Use
  Company Number: US-CELGENEUS-163-21880-12070417

PATIENT
  Sex: Female

DRUGS (5)
  1. REVLIMID [Suspect]
     Indication: MULTIPLE MYELOMA
     Dosage: 25 MILLIGRAM
     Route: 048
     Dates: start: 20091201
  2. COUMADIN [Concomitant]
     Indication: ANTICOAGULANT THERAPY
     Dosage: 5 MILLIGRAM
     Route: 048
     Dates: start: 20090201
  3. REVLIMID [Suspect]
     Dosage: 25 MILLIGRAM
     Route: 048
     Dates: start: 20110930, end: 20120615
  4. OXYCODONE HCL [Concomitant]
     Indication: PAIN
     Dosage: 1-2
     Route: 048
     Dates: start: 20120501
  5. DEXAMETHASONE [Concomitant]
     Indication: CANCER IN REMISSION
     Dosage: 2.8571 MILLIGRAM
     Route: 048
     Dates: start: 20111001

REACTIONS (1)
  - OSTEOARTHRITIS [None]
